FAERS Safety Report 25046174 (Version 4)
Quarter: 2025Q2

REPORT INFORMATION
  Report Type: Spontaneous
  Country: US (occurrence: US)
  Receive Date: 20250306
  Receipt Date: 20250408
  Transmission Date: 20250717
  Serious: No
  Sender: PFIZER
  Company Number: US-PFIZER INC-PV202300059805

PATIENT
  Age: 84 Year
  Sex: Female
  Weight: 210 kg

DRUGS (3)
  1. PREMARIN [Suspect]
     Active Substance: ESTROGENS, CONJUGATED
     Dosage: UNK UNK, 2X/WEEK
     Route: 067
     Dates: end: 2024
  2. PREMARIN [Suspect]
     Active Substance: ESTROGENS, CONJUGATED
     Dosage: UNK, DAILY
     Dates: end: 2024
  3. ELIQUIS [Concomitant]
     Active Substance: APIXABAN
     Indication: Cardiac disorder

REACTIONS (3)
  - Feeling abnormal [Unknown]
  - Product dispensing error [Unknown]
  - Product dose omission issue [Unknown]
